FAERS Safety Report 11810926 (Version 1)
Quarter: 2015Q4

REPORT INFORMATION
  Report Type: Report from Study
  Country: US (occurrence: US)
  Receive Date: 20151208
  Receipt Date: 20151208
  Transmission Date: 20160305
  Serious: Yes (Other)
  Sender: FDA-Public Use
  Company Number: US-ABBVIE-15K-163-1511751-00

PATIENT
  Sex: Female
  Weight: 51.3 kg

DRUGS (4)
  1. HUMIRA [Suspect]
     Active Substance: ADALIMUMAB
     Indication: RHEUMATOID ARTHRITIS
     Route: 058
     Dates: end: 201508
  2. HCTZ [Concomitant]
     Active Substance: HYDROCHLOROTHIAZIDE
     Indication: HYPERTENSION
  3. ASPIRIN. [Concomitant]
     Active Substance: ASPIRIN
     Indication: PRODUCT USED FOR UNKNOWN INDICATION
  4. CELEBREX [Concomitant]
     Active Substance: CELECOXIB
     Indication: PRODUCT USED FOR UNKNOWN INDICATION

REACTIONS (6)
  - Post procedural infection [Recovering/Resolving]
  - Impaired healing [Recovering/Resolving]
  - Pain in extremity [Not Recovered/Not Resolved]
  - Foot fracture [Recovered/Resolved]
  - Rheumatoid arthritis [Unknown]
  - Wound [Recovering/Resolving]

NARRATIVE: CASE EVENT DATE: 2014
